FAERS Safety Report 9820470 (Version 2)
Quarter: 2014Q2

REPORT INFORMATION
  Report Type: Spontaneous
  Country: US (occurrence: None)
  Receive Date: 20131028
  Receipt Date: 20140527
  Transmission Date: 20141212
  Serious: Yes (Hospitalization)
  Sender: FDA-Public Use
  Company Number: 2013US001695

PATIENT
  Age: 47 Year
  Sex: Male
  Weight: 86 kg

DRUGS (3)
  1. ICLUSIG [Suspect]
     Indication: CHRONIC MYELOID LEUKAEMIA
     Route: 048
     Dates: start: 20130507
  2. ZYRTEC (CETIRIZINE HYDROCHLORIDE) [Concomitant]
  3. ANTIFUNGAL (TOLNAFTATE) [Concomitant]

REACTIONS (3)
  - Cellulitis [None]
  - White blood cell count increased [None]
  - Arthropod bite [None]
